FAERS Safety Report 10160663 (Version 1)
Quarter: 2014Q2

REPORT INFORMATION
  Report Type: Report from Study
  Country: JP (occurrence: JP)
  Receive Date: 20140508
  Receipt Date: 20140508
  Transmission Date: 20141212
  Serious: Yes (Death, Hospitalization)
  Sender: FDA-Public Use
  Company Number: JP-CELGENEUS-087-50794-14051002

PATIENT
  Age: 72 Year
  Sex: Male
  Weight: 61 kg

DRUGS (32)
  1. VIDAZA [Suspect]
     Indication: MYELODYSPLASTIC SYNDROME
     Route: 065
     Dates: start: 20130107, end: 20130111
  2. VIDAZA [Suspect]
     Route: 065
     Dates: start: 20130212, end: 20130216
  3. VIDAZA [Suspect]
     Route: 065
     Dates: start: 20130318, end: 20130325
  4. VIDAZA [Suspect]
     Route: 065
     Dates: start: 20130415, end: 20130419
  5. VITAMIN K2 [Concomitant]
     Indication: MYELODYSPLASTIC SYNDROME
     Route: 065
  6. VITAMIN D3 [Concomitant]
     Indication: MYELODYSPLASTIC SYNDROME
     Route: 065
  7. GLAKAY [Concomitant]
     Indication: PRODUCT USED FOR UNKNOWN INDICATION
     Route: 065
  8. ALFAROL [Concomitant]
     Indication: PRODUCT USED FOR UNKNOWN INDICATION
     Route: 065
  9. ITRIZOLE [Concomitant]
     Indication: PRODUCT USED FOR UNKNOWN INDICATION
     Route: 065
  10. KYTRIL [Concomitant]
     Indication: PRODUCT USED FOR UNKNOWN INDICATION
     Route: 065
     Dates: start: 20130107, end: 20130111
  11. KYTRIL [Concomitant]
     Route: 065
     Dates: start: 20130212, end: 20130216
  12. KYTRIL [Concomitant]
     Route: 065
     Dates: start: 20130318, end: 20130325
  13. CRAVIT [Concomitant]
     Indication: PRODUCT USED FOR UNKNOWN INDICATION
     Route: 065
     Dates: end: 20130203
  14. CRAVIT [Concomitant]
     Route: 065
     Dates: start: 20130214, end: 20130313
  15. CRAVIT [Concomitant]
     Route: 065
     Dates: start: 20130321, end: 20130410
  16. CRAVIT [Concomitant]
     Route: 065
     Dates: start: 20130417, end: 20130424
  17. CRAVIT [Concomitant]
     Route: 065
     Dates: start: 20130518
  18. ADOFEED [Concomitant]
     Indication: PRODUCT USED FOR UNKNOWN INDICATION
     Route: 065
     Dates: start: 20130113
  19. CELECOX [Concomitant]
     Indication: PRODUCT USED FOR UNKNOWN INDICATION
     Route: 065
     Dates: end: 20130115
  20. RINDERON [Concomitant]
     Indication: PRODUCT USED FOR UNKNOWN INDICATION
     Route: 065
     Dates: start: 20130419
  21. FLOMOX [Concomitant]
     Indication: PRODUCT USED FOR UNKNOWN INDICATION
     Route: 065
     Dates: start: 20130425, end: 20130508
  22. EXJADE [Concomitant]
     Indication: PRODUCT USED FOR UNKNOWN INDICATION
     Route: 065
     Dates: start: 20130425
  23. CALONAL [Concomitant]
     Indication: PRODUCT USED FOR UNKNOWN INDICATION
     Route: 065
     Dates: start: 20130513
  24. CEFEPIME DIHYDROCHLORIDE HYDRATE [Concomitant]
     Indication: PRODUCT USED FOR UNKNOWN INDICATION
     Route: 065
     Dates: start: 20130513, end: 20130517
  25. SOLITA [Concomitant]
     Indication: PRODUCT USED FOR UNKNOWN INDICATION
     Route: 065
     Dates: start: 20130513, end: 20130513
  26. BFLUID [Concomitant]
     Indication: PRODUCT USED FOR UNKNOWN INDICATION
     Route: 065
     Dates: start: 20130513, end: 20130517
  27. LOXONIN [Concomitant]
     Indication: PRODUCT USED FOR UNKNOWN INDICATION
     Route: 065
     Dates: start: 20130513, end: 20130515
  28. DICLOFENAC SODIUM [Concomitant]
     Indication: PRODUCT USED FOR UNKNOWN INDICATION
     Route: 065
     Dates: start: 20130514
  29. TRANSAMIN [Concomitant]
     Indication: PRODUCT USED FOR UNKNOWN INDICATION
     Route: 065
     Dates: start: 20130514
  30. HACHIAZULE [Concomitant]
     Indication: PRODUCT USED FOR UNKNOWN INDICATION
     Route: 065
     Dates: start: 20130514
  31. RED BLOOD CELLS [Concomitant]
     Indication: PRODUCT USED FOR UNKNOWN INDICATION
     Route: 041
  32. PLATELETS [Concomitant]
     Indication: PRODUCT USED FOR UNKNOWN INDICATION
     Route: 041

REACTIONS (3)
  - Myelodysplastic syndrome [Fatal]
  - Febrile neutropenia [Unknown]
  - C-reactive protein increased [Recovering/Resolving]
